FAERS Safety Report 5058253-5 (Version None)
Quarter: 2006Q2

REPORT INFORMATION
  Report Type: 
  Country: None (occurrence: None)
  Receive Date: 20060627
  Receipt Date: 20050803
  Transmission Date: 20061013
  Serious: Yes (Other)
  Sender: FDA-Public Use
  Company Number: 413051

PATIENT
  Age: 59 Year
  Sex: Female

DRUGS (2)
  1. ROFERON-A [Suspect]
     Indication: HEPATITIS C
     Dosage: SUBCUTANEOUS
     Route: 058
     Dates: end: 20010615
  2. RIBAVIRIN [Suspect]
     Indication: HEPATITIS C
     Dosage: ORAL
     Route: 048
     Dates: end: 20010615

REACTIONS (4)
  - FIBROMYALGIA [None]
  - FURUNCLE [None]
  - PRURITUS GENERALISED [None]
  - SUICIDAL IDEATION [None]
